FAERS Safety Report 15180361 (Version 1)
Quarter: 2018Q3

REPORT INFORMATION
  Report Type: Spontaneous
  Country: US (occurrence: US)
  Receive Date: 20180623
  Receipt Date: 20180623
  Transmission Date: 20181010
  Serious: Yes (Other)
  Sender: FDA-Public Use
  Company Number: None

PATIENT
  Age: 37 Year
  Sex: Female
  Weight: 71.1 kg

DRUGS (3)
  1. VITAMIN D3?50 [Concomitant]
  2. BENZOCAINE. [Suspect]
     Active Substance: BENZOCAINE
     Indication: HYPOAESTHESIA ORAL
     Route: 061
     Dates: start: 20180621, end: 20180621
  3. COPAXONE [Concomitant]
     Active Substance: GLATIRAMER ACETATE

REACTIONS (3)
  - Gingival discolouration [None]
  - Gingival discomfort [None]
  - Burning sensation [None]

NARRATIVE: CASE EVENT DATE: 20180621
